FAERS Safety Report 24929131 (Version 1)
Quarter: 2025Q1

REPORT INFORMATION
  Report Type: Report from Study
  Country: BR (occurrence: BR)
  Receive Date: 20250205
  Receipt Date: 20250205
  Transmission Date: 20250409
  Serious: Yes (Hospitalization)
  Sender: ALNYLAM PHARMACEUTICALS
  Company Number: BR-ALNYLAM PHARMACEUTICALS, INC.-ALN-2025-000747

PATIENT

DRUGS (2)
  1. GIVLAARI [Suspect]
     Active Substance: GIVOSIRAN SODIUM
     Indication: Porphyria acute
     Dosage: UNK, MONTHLY (PRESENTATION: 189 MILLIGRAM/MILLILITRE); 1 VIAL
     Route: 058
     Dates: start: 20230315, end: 20230315
  2. GIVLAARI [Suspect]
     Active Substance: GIVOSIRAN SODIUM
     Dosage: UNK, MONTHLY (PRESENTATION: 189 MILLIGRAM/MILLILITRE); 1 VIAL
     Route: 058
     Dates: start: 20241216, end: 20241216

REACTIONS (2)
  - Hospitalisation [Recovered/Resolved]
  - Intentional dose omission [Unknown]

NARRATIVE: CASE EVENT DATE: 20250110
